FAERS Safety Report 16158012 (Version 2)
Quarter: 2019Q2

REPORT INFORMATION
  Report Type: Spontaneous
  Country: US (occurrence: US)
  Receive Date: 20190404
  Receipt Date: 20190415
  Transmission Date: 20190711
  Serious: No
  Sender: FDA-Public Use
  Company Number: US-AMGEN-USASP2019050219

PATIENT
  Age: 78 Year
  Sex: Female

DRUGS (3)
  1. CALCIUM [Concomitant]
     Active Substance: CALCIUM
     Indication: OSTEOPOROSIS
     Dosage: 200 UNK, QD
  2. VITAMIN D [COLECALCIFEROL] [Concomitant]
     Active Substance: CHOLECALCIFEROL
     Dosage: 3000 UNK, QD
  3. PROLIA [Suspect]
     Active Substance: DENOSUMAB
     Indication: OSTEOPOROSIS
     Dosage: 60 MILLIGRAM
     Route: 065

REACTIONS (2)
  - Pain in extremity [Not Recovered/Not Resolved]
  - Bone pain [Not Recovered/Not Resolved]
